FAERS Safety Report 18634360 (Version 1)
Quarter: 2020Q4

REPORT INFORMATION
  Report Type: Spontaneous
  Country: US (occurrence: US)
  Receive Date: 20201218
  Receipt Date: 20201218
  Transmission Date: 20210114
  Serious: No
  Sender: FDA-Public Use
  Company Number: None

PATIENT
  Age: 67 Year
  Sex: Female
  Weight: 67.5 kg

DRUGS (9)
  1. SIMVASTATIN. [Concomitant]
     Active Substance: SIMVASTATIN
  2. MELATONIN [Concomitant]
     Active Substance: MELATONIN
  3. METFORMIN [Concomitant]
     Active Substance: METFORMIN HYDROCHLORIDE
  4. HYDROCHLOROTHIAZIDE. [Concomitant]
     Active Substance: HYDROCHLOROTHIAZIDE
  5. TRADJENTA [Concomitant]
     Active Substance: LINAGLIPTIN
  6. CANCIUM [Concomitant]
  7. TROSPIUM CHLORIDE. [Suspect]
     Active Substance: TROSPIUM CHLORIDE
     Indication: HYPERTONIC BLADDER
     Dosage: ?          QUANTITY:1 CAPSULE(S);?
     Route: 048
  8. VITAMIN D [Concomitant]
     Active Substance: VITAMIN D NOS
  9. LISINOPRIL. [Concomitant]
     Active Substance: LISINOPRIL

REACTIONS (3)
  - Feeling of body temperature change [None]
  - Haematochezia [None]
  - Nausea [None]

NARRATIVE: CASE EVENT DATE: 20201212
